FAERS Safety Report 15820206 (Version 3)
Quarter: 2019Q2

REPORT INFORMATION
  Report Type: Report from Study
  Country: US (occurrence: US)
  Receive Date: 20190114
  Receipt Date: 20190402
  Transmission Date: 20190711
  Serious: Yes (Life-Threatening, Other)
  Sender: FDA-Public Use
  Company Number: PHEH2019US001474

PATIENT
  Age: 48 Year
  Sex: Female

DRUGS (1)
  1. GILENYA [Suspect]
     Active Substance: FINGOLIMOD HYDROCHLORIDE
     Indication: MULTIPLE SCLEROSIS
     Dosage: 0.5 MG, QD
     Route: 048
     Dates: start: 20181214, end: 20190109

REACTIONS (12)
  - Multiple sclerosis relapse [Unknown]
  - Fatigue [Recovering/Resolving]
  - Cognitive disorder [Unknown]
  - Malaise [Recovering/Resolving]
  - Drug hypersensitivity [Unknown]
  - Pain [Unknown]
  - Lymphopenia [Recovered/Resolved]
  - Abdominal pain upper [Unknown]
  - Abdominal pain [Recovering/Resolving]
  - Mood swings [Unknown]
  - JC polyomavirus test positive [Unknown]
  - Immune system disorder [Unknown]

NARRATIVE: CASE EVENT DATE: 20181227
